FAERS Safety Report 18495116 (Version 1)
Quarter: 2020Q4

REPORT INFORMATION
  Report Type: Spontaneous
  Country: US (occurrence: US)
  Receive Date: 20201111
  Receipt Date: 20201111
  Transmission Date: 20210114
  Serious: Yes (Other)
  Sender: FDA-Public Use
  Company Number: None

PATIENT
  Age: 65 Year
  Sex: Male
  Weight: 76.5 kg

DRUGS (3)
  1. VITAMIN D 200MG [Concomitant]
  2. TADALAFIL 10MG TAB RX#6406429 [Suspect]
     Active Substance: TADALAFIL
     Indication: ERECTILE DYSFUNCTION
     Route: 048
     Dates: start: 20200701, end: 20201101
  3. VITAMIN C 500MG [Concomitant]

REACTIONS (4)
  - Product substitution issue [None]
  - Drug ineffective [None]
  - Product reconstitution quality issue [None]
  - Suspected counterfeit product [None]

NARRATIVE: CASE EVENT DATE: 20200915
